FAERS Safety Report 24914975 (Version 1)
Quarter: 2025Q1

REPORT INFORMATION
  Report Type: Spontaneous
  Country: US (occurrence: US)
  Receive Date: 20250203
  Receipt Date: 20250203
  Transmission Date: 20250409
  Serious: Yes (Hospitalization)
  Sender: NOVO NORDISK
  Company Number: US-NOVOPROD-1358807

PATIENT
  Age: 76 Year
  Sex: Female

DRUGS (2)
  1. OZEMPIC [Suspect]
     Active Substance: SEMAGLUTIDE
     Indication: Type 2 diabetes mellitus
     Route: 058
     Dates: start: 202411
  2. OZEMPIC [Suspect]
     Active Substance: SEMAGLUTIDE
     Route: 058

REACTIONS (4)
  - Shoulder arthroplasty [Recovered/Resolved]
  - Knee arthroplasty [Recovering/Resolving]
  - Injection site haemorrhage [Recovered/Resolved]
  - Product label confusion [Unknown]

NARRATIVE: CASE EVENT DATE: 20241125
